FAERS Safety Report 8475074-1 (Version None)
Quarter: 2012Q2

REPORT INFORMATION
  Report Type: 
  Country: None (occurrence: None)
  Receive Date: 20120628
  Receipt Date: 20120619
  Transmission Date: 20120825
  Serious: Yes (Other)
  Sender: FDA-Public Use
  Company Number: CA-JNJFOC-20120609385

PATIENT
  Sex: Female
  Weight: 77 kg

DRUGS (2)
  1. REMICADE [Suspect]
     Indication: CROHN'S DISEASE
     Route: 042
     Dates: start: 20070601
  2. IMURAN [Concomitant]
     Route: 048

REACTIONS (1)
  - CARPAL TUNNEL SYNDROME [None]
